FAERS Safety Report 7572391-4 (Version None)
Quarter: 2011Q2

REPORT INFORMATION
  Report Type: 
  Country: None (occurrence: None)
  Receive Date: 20110624
  Receipt Date: 20110621
  Transmission Date: 20111010
  Serious: Yes (Life-Threatening, Other)
  Sender: FDA-Public Use
  Company Number: PHHY2011BR55006

PATIENT
  Sex: Female
  Weight: 60 kg

DRUGS (2)
  1. EXELON [Suspect]
     Dosage: 3 MG (1 CAPSULE A DAY)
     Route: 048
     Dates: start: 20110101, end: 20110612
  2. EXELON [Suspect]
     Indication: DEMENTIA ALZHEIMER'S TYPE
     Dosage: 4.5 MG (1 CAPSULE PER DAY)
     Route: 048
     Dates: start: 20110613, end: 20110614

REACTIONS (3)
  - APPARENT DEATH [None]
  - RETCHING [None]
  - MALAISE [None]
